FAERS Safety Report 5262719-2 (Version None)
Quarter: 2007Q1

REPORT INFORMATION
  Report Type: 
  Country: None (occurrence: None)
  Receive Date: 20070308
  Receipt Date: 20070222
  Transmission Date: 20070707
  Serious: Yes (Hospitalization)
  Sender: FDA-Public Use
  Company Number: 237025

PATIENT
  Age: 10 Year
  Sex: Male

DRUGS (2)
  1. NUTROPIN AQ [Suspect]
     Indication: GROWTH HORMONE DEFICIENCY
     Dosage: 0.9 MG QD SUBCUTANEOUS
     Route: 058
     Dates: start: 20070206, end: 20070211
  2. DDAVP [Concomitant]

REACTIONS (2)
  - CONDITION AGGRAVATED [None]
  - DIABETES INSIPIDUS [None]
